FAERS Safety Report 19767512 (Version 2)
Quarter: 2021Q3

REPORT INFORMATION
  Report Type: Report from Study
  Country: ES (occurrence: ES)
  Receive Date: 20210831
  Receipt Date: 20210901
  Transmission Date: 20211014
  Serious: Yes (Other)
  Sender: FDA-Public Use
  Company Number: ES-GLAXOSMITHKLINE-ES2021GSK181308

PATIENT

DRUGS (4)
  1. BENDAMUSTINE [Concomitant]
     Active Substance: BENDAMUSTINE
     Indication: DISEASE PROGRESSION
  2. PREDNISONE. [Concomitant]
     Active Substance: PREDNISONE
     Indication: DISEASE PROGRESSION
  3. BELANTAMAB MAFODOTIN. [Suspect]
     Active Substance: BELANTAMAB MAFODOTIN
     Dosage: 100 MG/VIALS/2.5 MG/KG EVERY THREE WEEKS (LYOPHILIZED POWDER)
     Route: 042
     Dates: start: 20210627
  4. BELANTAMAB MAFODOTIN. [Suspect]
     Active Substance: BELANTAMAB MAFODOTIN
     Indication: PLASMA CELL MYELOMA
     Dosage: 100 MG/VIALS/2.5 MG/KG EVERY THREE WEEKS (LYOPHILIZED POWDER)
     Route: 042
     Dates: start: 20210607

REACTIONS (3)
  - Plasma cell myeloma [Unknown]
  - Visual acuity reduced [Unknown]
  - Thrombocytopenia [Unknown]
